FAERS Safety Report 12389341 (Version 1)
Quarter: 2016Q2

REPORT INFORMATION
  Report Type: Spontaneous
  Country: US (occurrence: US)
  Receive Date: 20160520
  Receipt Date: 20160520
  Transmission Date: 20160815
  Serious: Yes (Hospitalization, Other)
  Sender: FDA-Public Use
  Company Number: US-MDT-ADR-2016-00135

PATIENT
  Age: 50 Year
  Sex: Female

DRUGS (3)
  1. FENTANYL. [Suspect]
     Active Substance: FENTANYL
     Dosage: 36.75/DAY
  2. BACLOFEN. [Suspect]
     Active Substance: BACLOFEN
  3. CLONIDINE. [Suspect]
     Active Substance: CLONIDINE
     Dosage: 262.5 MCG/DAY

REACTIONS (1)
  - Drug withdrawal syndrome [Recovered/Resolved]
